FAERS Safety Report 11473694 (Version 1)
Quarter: 2015Q3

REPORT INFORMATION
  Report Type: Report from Study
  Country: US (occurrence: US)
  Receive Date: 20150908
  Receipt Date: 20150908
  Transmission Date: 20151125
  Serious: Yes (Hospitalization, Congenital Anomaly, Other)
  Sender: FDA-Public Use
  Company Number: US-ABBVIE-14P-163-1268274-00

PATIENT
  Sex: Female

DRUGS (2)
  1. HUMIRA [Suspect]
     Active Substance: ADALIMUMAB
     Route: 063
  2. HUMIRA [Suspect]
     Active Substance: ADALIMUMAB
     Indication: MATERNAL EXPOSURE TIMING UNSPECIFIED
     Route: 064

REACTIONS (8)
  - Foetal exposure during pregnancy [Unknown]
  - Apnoea [Recovered/Resolved]
  - Umbilical cord abnormality [Recovered/Resolved]
  - Lung disorder [Recovering/Resolving]
  - Hypotonia [Recovering/Resolving]
  - Exposure during breast feeding [Unknown]
  - Cough [Not Recovered/Not Resolved]
  - Premature baby [Not Recovered/Not Resolved]

NARRATIVE: CASE EVENT DATE: 201412
